FAERS Safety Report 7715203-8 (Version None)
Quarter: 2011Q3

REPORT INFORMATION
  Report Type: 
  Country: None (occurrence: None)
  Receive Date: 20110829
  Receipt Date: 20110819
  Transmission Date: 20111222
  Serious: Yes (Hospitalization)
  Sender: FDA-Public Use
  Company Number: PHHY2011DE75122

PATIENT

DRUGS (1)
  1. EVEROLIMUS [Suspect]
     Indication: TUBEROUS SCLEROSIS
     Dosage: ACCORDING BODY SURFACE AREA
     Route: 048

REACTIONS (1)
  - PSEUDOCROUP [None]
